FAERS Safety Report 17691572 (Version 1)
Quarter: 2020Q2

REPORT INFORMATION
  Report Type: Report from Study
  Country: US (occurrence: US)
  Receive Date: 20200422
  Receipt Date: 20200422
  Transmission Date: 20200714
  Serious: Yes (Hospitalization, Other)
  Sender: FDA-Public Use
  Company Number: US-ROCHE-2586158

PATIENT
  Sex: Female
  Weight: 56.75 kg

DRUGS (5)
  1. EFFEXOR [Concomitant]
     Active Substance: VENLAFAXINE HYDROCHLORIDE
     Indication: DEPRESSION
     Route: 048
     Dates: start: 2019
  2. OCREVUS [Suspect]
     Active Substance: OCRELIZUMAB
     Indication: RELAPSING-REMITTING MULTIPLE SCLEROSIS
     Dosage: 01/MAY/2018, 04/OCT/2018, 05/APR/2019, 04/OCT/2019, 09/APR/2020
     Route: 042
     Dates: start: 20180415
  3. NEURONTIN [Concomitant]
     Active Substance: GABAPENTIN
     Indication: NEURALGIA
     Route: 048
     Dates: start: 2009
  4. REMERON [Concomitant]
     Active Substance: MIRTAZAPINE
     Indication: DEPRESSION
     Route: 048
     Dates: start: 2020
  5. PROVIGIL [Concomitant]
     Active Substance: MODAFINIL
     Indication: FATIGUE
     Route: 048
     Dates: start: 2009

REACTIONS (6)
  - Thrombosis [Not Recovered/Not Resolved]
  - Fatigue [Recovered/Resolved]
  - Hypersensitivity [Not Recovered/Not Resolved]
  - Cellulitis [Recovered/Resolved]
  - Migraine [Recovered/Resolved]
  - Multiple sclerosis relapse [Recovered/Resolved]
